FAERS Safety Report 9549419 (Version 2)
Quarter: 2013Q4

REPORT INFORMATION
  Report Type: Report from Study
  Country: CA (occurrence: CA)
  Receive Date: 20130924
  Receipt Date: 20131021
  Transmission Date: 20140711
  Serious: Yes (Death, Other)
  Sender: FDA-Public Use
  Company Number: CA-ABBVIE-13P-028-1150374-00

PATIENT
  Sex: Male
  Weight: 106.69 kg

DRUGS (1)
  1. LUPRON DEPOT [Suspect]
     Indication: PROSTATE CANCER
     Dosage: LAST DOSE GIVEN 03-JUL-2013?
     Route: 030
     Dates: start: 200910

REACTIONS (3)
  - Metastases to bone [Fatal]
  - Weight decreased [Unknown]
  - Spinal cord compression [Unknown]
